FAERS Safety Report 8117306-5 (Version None)
Quarter: 2012Q1

REPORT INFORMATION
  Report Type: 
  Country: None (occurrence: None)
  Receive Date: 20120206
  Receipt Date: 20120124
  Transmission Date: 20120608
  Serious: Yes (Other)
  Sender: FDA-Public Use
  Company Number: US-ELI_LILLY_AND_COMPANY-US201109006445

PATIENT
  Sex: Male

DRUGS (10)
  1. PROZAC [Concomitant]
     Indication: DEPRESSION
     Dosage: 40 MG, QD
  2. LIPITOR [Concomitant]
     Indication: HYPERLIPIDAEMIA
     Dosage: 40 MG, QD
  3. EXENATIDE [Suspect]
     Indication: DEMENTIA ALZHEIMER'S TYPE
     Dosage: 5 UG, BID
     Route: 058
     Dates: start: 20110322, end: 20110329
  4. PREVACID [Concomitant]
     Indication: GASTROOESOPHAGEAL REFLUX DISEASE
     Dosage: 30 MG, QD
  5. VITAMIN A [Concomitant]
     Dosage: 2000 U, UNK
  6. COLACE [Concomitant]
     Dosage: 10 MG, QD
  7. LAMICTAL [Concomitant]
     Indication: DEPRESSION
     Dosage: 50 MG, BID
  8. ELAVIL [Concomitant]
     Indication: NEUROPATHY PERIPHERAL
     Dosage: 20 MG, QD
  9. WELLBUTRIN [Concomitant]
     Indication: DEPRESSION
     Dosage: 150 MG, OTHER
  10. ASPIRIN [Concomitant]
     Dosage: 81 MG, QD

REACTIONS (1)
  - PANCREATIC ENZYMES INCREASED [None]
